FAERS Safety Report 8713352 (Version 3)
Quarter: 2014Q2

REPORT INFORMATION
  Report Type: Report from Study
  Country: US (occurrence: US)
  Receive Date: 20120808
  Receipt Date: 20140620
  Transmission Date: 20141212
  Serious: Yes (Death)
  Sender: FDA-Public Use
  Company Number: US-ROCHE-1098491

PATIENT
  Age: 55 Year
  Sex: Male

DRUGS (2)
  1. LUCENTIS [Suspect]
     Indication: DIABETIC RETINAL OEDEMA
     Route: 050
     Dates: start: 20120625, end: 20120625
  2. LUCENTIS [Suspect]
     Indication: DIABETIC RETINOPATHY

REACTIONS (1)
  - Death [Fatal]
